FAERS Safety Report 14132342 (Version 1)
Quarter: 2017Q4

REPORT INFORMATION
  Report Type: Report from Study
  Country: ES (occurrence: ES)
  Receive Date: 20171026
  Receipt Date: 20171026
  Transmission Date: 20180321
  Serious: Yes (Other)
  Sender: FDA-Public Use
  Company Number: ES-BAYER-2017-202106

PATIENT
  Age: 9 Year
  Sex: Male

DRUGS (1)
  1. ACETYLSALICYLIC ACID [Suspect]
     Active Substance: ASPIRIN
     Indication: IMMUNE TOLERANCE INDUCTION
     Dosage: 375 MG, 5 MINUTES

REACTIONS (4)
  - Angioedema [None]
  - Dyspnoea [None]
  - Conjunctivitis [None]
  - Forced expiratory volume decreased [None]
